FAERS Safety Report 9106480 (Version 1)
Quarter: 2013Q1

REPORT INFORMATION
  Report Type: Spontaneous
  Country: US (occurrence: US)
  Receive Date: 20130221
  Receipt Date: 20130221
  Transmission Date: 20140127
  Serious: Yes (Other)
  Sender: FDA-Public Use
  Company Number: US-GLAXOSMITHKLINE-A1009337A

PATIENT
  Age: 59 Year
  Sex: Female
  Weight: 102.7 kg

DRUGS (3)
  1. BENLYSTA [Suspect]
     Indication: SYSTEMIC LUPUS ERYTHEMATOSUS
     Route: 042
  2. CELLCEPT [Suspect]
     Indication: PRODUCT USED FOR UNKNOWN INDICATION
     Route: 065
  3. STEROIDS [Suspect]
     Indication: PRODUCT USED FOR UNKNOWN INDICATION
     Route: 065

REACTIONS (6)
  - Cellulitis [Recovering/Resolving]
  - Oesophageal candidiasis [Recovering/Resolving]
  - Tooth abscess [Recovering/Resolving]
  - Oral candidiasis [Recovering/Resolving]
  - Influenza [Recovering/Resolving]
  - Infection [Recovering/Resolving]
